FAERS Safety Report 19763220 (Version 3)
Quarter: 2022Q1

REPORT INFORMATION
  Report Type: Spontaneous
  Country: US (occurrence: US)
  Receive Date: 20210830
  Receipt Date: 20220125
  Transmission Date: 20220423
  Serious: No
  Sender: FDA-Public Use
  Company Number: US-PFIZER INC-2020140850

PATIENT
  Age: 68 Year
  Sex: Female
  Weight: 63.96 kg

DRUGS (1)
  1. PREMARIN [Suspect]
     Active Substance: ESTROGENS, CONJUGATED
     Indication: Hormone replacement therapy
     Dosage: 0.625 MG, 2X/DAY (1 AM + 1 PM)
     Route: 048
     Dates: start: 20210414

REACTIONS (1)
  - Confusional state [Unknown]
